FAERS Safety Report 5696125-3 (Version None)
Quarter: 2008Q2

REPORT INFORMATION
  Report Type: 
  Country: None (occurrence: None)
  Receive Date: 20080407
  Receipt Date: 20080327
  Transmission Date: 20081010
  Serious: Yes (Life-Threatening, Other)
  Sender: FDA-Public Use
  Company Number: JP-ROCHE-553382

PATIENT
  Sex: Female
  Weight: 49 kg

DRUGS (5)
  1. TAMIFLU [Suspect]
     Indication: INFLUENZA
     Route: 048
     Dates: start: 20080205, end: 20080205
  2. TAMIFLU [Suspect]
     Dosage: DOSE INCREASED
     Route: 048
     Dates: start: 20080206, end: 20080209
  3. TAMIFLU [Suspect]
     Dosage: DOSE DECREASED
     Route: 048
     Dates: start: 20080210, end: 20080210
  4. RIVOTRIL [Concomitant]
     Route: 048
     Dates: end: 20080222
  5. ZOLOFT [Concomitant]
     Dosage: DRUG REPORTED JZOLOFT
     Route: 048
     Dates: start: 20070701, end: 20080226

REACTIONS (2)
  - HEPATIC FAILURE [None]
  - LIVER DISORDER [None]
